FAERS Safety Report 14323671 (Version 2)
Quarter: 2018Q1

REPORT INFORMATION
  Report Type: Spontaneous
  Country: US (occurrence: US)
  Receive Date: 20171226
  Receipt Date: 20180221
  Transmission Date: 20180509
  Serious: Yes (Other)
  Sender: FDA-Public Use
  Company Number: US-DRREDDYS-USA/USA/17/0095397

PATIENT
  Age: 65 Year
  Sex: Male

DRUGS (2)
  1. DILTIAZEM. [Suspect]
     Active Substance: DILTIAZEM
     Indication: HEART RATE INCREASED
     Route: 042
  2. METOPROLOL SUCCINATE. [Suspect]
     Active Substance: METOPROLOL SUCCINATE
     Indication: HEART RATE INCREASED
     Route: 048

REACTIONS (7)
  - Ventricular enlargement [Recovered/Resolved]
  - Left ventricular dysfunction [Recovered/Resolved]
  - Atrial flutter [Recovered/Resolved]
  - Drug intolerance [Unknown]
  - Ejection fraction decreased [Recovered/Resolved]
  - Cardiac ventricular thrombosis [Recovered/Resolved]
  - Hypotension [Recovered/Resolved]
